FAERS Safety Report 6812309-2 (Version None)
Quarter: 2010Q3

REPORT INFORMATION
  Report Type: 
  Country: None (occurrence: None)
  Receive Date: 20100701
  Receipt Date: 20100622
  Transmission Date: 20110219
  Serious: Yes (Hospitalization)
  Sender: FDA-Public Use
  Company Number: US-ASTRAZENECA-2010SE29362

PATIENT
  Sex: Female
  Weight: 56.7 kg

DRUGS (7)
  1. SEROQUEL XR [Suspect]
     Indication: ANXIETY
     Route: 048
     Dates: start: 20030101
  2. SEROQUEL XR [Suspect]
     Indication: DEPRESSION
     Route: 048
     Dates: start: 20030101
  3. CLONAZEPAM [Concomitant]
  4. LEXAPRO [Concomitant]
  5. SIMVASTATIN [Concomitant]
     Indication: BLOOD CHOLESTEROL
  6. ADVAIR DISKUS 100/50 [Concomitant]
     Route: 055
  7. SPIRIVA [Concomitant]

REACTIONS (4)
  - CAROTID ARTERY OCCLUSION [None]
  - LABILE BLOOD PRESSURE [None]
  - PNEUMONIA [None]
  - TRANSIENT ISCHAEMIC ATTACK [None]
